FAERS Safety Report 18587248 (Version 1)
Quarter: 2020Q4

REPORT INFORMATION
  Report Type: Spontaneous
  Country: US (occurrence: US)
  Receive Date: 20201207
  Receipt Date: 20201207
  Transmission Date: 20210114
  Serious: No
  Sender: FDA-Public Use
  Company Number: US-PFIZER INC-2020477305

PATIENT
  Age: 61 Year
  Sex: Female

DRUGS (1)
  1. LORBRENA [Suspect]
     Active Substance: LORLATINIB
     Indication: NEOPLASM
     Dosage: 100 MG

REACTIONS (4)
  - Drug effective for unapproved indication [Unknown]
  - Neoplasm progression [Unknown]
  - Off label use [Unknown]
  - Skin discolouration [Unknown]
